FAERS Safety Report 8322023-2 (Version None)
Quarter: 2012Q2

REPORT INFORMATION
  Report Type: 
  Country: None (occurrence: None)
  Receive Date: 20120430
  Receipt Date: 20120420
  Transmission Date: 20120825
  Serious: Yes (Hospitalization)
  Sender: FDA-Public Use
  Company Number: US-JNJFOC-20120410850

PATIENT
  Age: 79 Year
  Sex: Male
  Weight: 71.67 kg

DRUGS (6)
  1. TUCKS HEMORRHOIDAL OINTMENT [Suspect]
     Route: 061
     Dates: start: 20120418
  2. OMEGA 3 OIL [Concomitant]
     Indication: MEDICAL DIET
     Dosage: USED DAILY
     Route: 065
  3. LIPITOR [Concomitant]
     Indication: BLOOD CHOLESTEROL
     Route: 065
  4. TUCKS HEMORRHOIDAL OINTMENT [Suspect]
     Indication: HAEMORRHOIDS
     Dosage: AS DIRECTED BY PHYSICIAN
     Route: 061
  5. VITAMIN E (TOCOPHERYL ACETATE) [Concomitant]
     Indication: MEDICAL DIET
     Dosage: USED DAILY
     Route: 065
  6. VITAMIN C [Concomitant]
     Indication: MEDICAL DIET
     Dosage: USED DAILY
     Route: 065

REACTIONS (1)
  - HEART RATE INCREASED [None]
